FAERS Safety Report 5542059-4 (Version None)
Quarter: 2007Q4

REPORT INFORMATION
  Report Type: 
  Country: None (occurrence: None)
  Receive Date: 20071210
  Receipt Date: 20071129
  Transmission Date: 20080405
  Serious: Yes (Other)
  Sender: FDA-Public Use
  Company Number: GR-ASTRAZENECA-2007SE06341

PATIENT
  Age: 37 Year
  Sex: Male
  Weight: 90 kg

DRUGS (7)
  1. DIPRIVAN [Suspect]
     Indication: SEDATION
     Dosage: 2,5-4,75 MG/KG/HR
     Route: 042
     Dates: start: 20070121, end: 20070123
  2. DORMICUM [Concomitant]
     Route: 042
  3. LEVOPHED [Concomitant]
     Route: 042
  4. ULTIVA [Concomitant]
     Route: 042
  5. DEPAKENE [Concomitant]
     Route: 042
  6. TAZOCIN [Concomitant]
     Route: 042
  7. MANNITOL [Concomitant]
     Route: 042

REACTIONS (6)
  - ATRIOVENTRICULAR BLOCK COMPLETE [None]
  - BRADYCARDIA [None]
  - PROPOFOL INFUSION SYNDROME [None]
  - RENAL FAILURE ACUTE [None]
  - RESPIRATORY FAILURE [None]
  - RHABDOMYOLYSIS [None]
